FAERS Safety Report 8135094-3 (Version None)
Quarter: 2012Q1

REPORT INFORMATION
  Report Type: 
  Country: None (occurrence: None)
  Receive Date: 20120214
  Receipt Date: 20120209
  Transmission Date: 20120608
  Serious: Yes (Death, Life-Threatening, Hospitalization, Other)
  Sender: FDA-Public Use
  Company Number: JP-PFIZER INC-2012036547

PATIENT
  Age: 60 Year
  Sex: Male
  Weight: 64.7 kg

DRUGS (10)
  1. FAMOTIDINE [Concomitant]
     Indication: PROPHYLAXIS
     Dosage: 20 MG, 1X/DAY
     Route: 048
     Dates: start: 20090410
  2. SUNITINIB MALATE [Suspect]
     Dosage: 25 MG, 1X/DAY
     Route: 048
     Dates: start: 20090410, end: 20090501
  3. ZONISAMIDE [Concomitant]
     Indication: RENAL CELL CARCINOMA
     Dosage: 100 MG, 2X/DAY
     Route: 048
  4. RABEPRAZOLE SODIUM [Concomitant]
     Indication: PROPHYLAXIS
     Dosage: UNK
     Route: 048
     Dates: end: 20090409
  5. DECADRON [Concomitant]
     Indication: RENAL CELL CARCINOMA
     Dosage: 1 MG, 2X/DAY
     Route: 048
  6. NORVASC [Concomitant]
     Dosage: UNK
     Route: 048
     Dates: start: 20081016, end: 20090424
  7. WARFARIN [Concomitant]
     Dosage: 1 MG, 1X/DAY
     Route: 048
     Dates: start: 20090509, end: 20090509
  8. SUNITINIB MALATE [Suspect]
     Indication: RENAL CELL CARCINOMA
     Dosage: 50 MG, 1X/DAY
     Route: 048
     Dates: start: 20081008, end: 20090109
  9. DIOVAN [Concomitant]
     Dosage: UNK
     Route: 048
     Dates: end: 20090410
  10. WARFARIN [Concomitant]
     Dosage: 2.5 MG, 1X/DAY
     Route: 048
     Dates: end: 20090508

REACTIONS (5)
  - PLATELET COUNT DECREASED [None]
  - HYPERCALCAEMIA [None]
  - HYPERURICAEMIA [None]
  - HYPOPHOSPHATAEMIA [None]
  - ACCIDENT [None]
